FAERS Safety Report 19456414 (Version 1)
Quarter: 2021Q2

REPORT INFORMATION
  Report Type: Spontaneous
  Country: IE (occurrence: GB)
  Receive Date: 20210624
  Receipt Date: 20210624
  Transmission Date: 20210717
  Serious: Yes (Death, Hospitalization, Other)
  Sender: FDA-Public Use
  Company Number: IE-SUN PHARMACEUTICAL INDUSTRIES LTD-2021RR-299447

PATIENT
  Age: 80 Year
  Sex: Female

DRUGS (4)
  1. WARFARIN [Suspect]
     Active Substance: WARFARIN
     Indication: THROMBOSIS
     Dosage: UNK
     Route: 065
  2. RANITIDINE. [Suspect]
     Active Substance: RANITIDINE
     Indication: CHOLELITHIASIS
     Dosage: 150 MILLIGRAM, BID
     Route: 065
     Dates: start: 201812
  3. APIXABAN [Suspect]
     Active Substance: APIXABAN
     Indication: PRODUCT USED FOR UNKNOWN INDICATION
     Dosage: UNK
     Route: 065
  4. ZANTAC [Suspect]
     Active Substance: RANITIDINE HYDROCHLORIDE
     Indication: CHOLELITHOTOMY
     Dosage: UNK
     Route: 065

REACTIONS (10)
  - Cholelithiasis [Fatal]
  - Malaise [Unknown]
  - Illness [Fatal]
  - Condition aggravated [Unknown]
  - Vomiting [Unknown]
  - Diarrhoea [Unknown]
  - Weight decreased [Unknown]
  - Intestinal obstruction [Unknown]
  - Product use in unapproved indication [Unknown]
  - Hepatic failure [Fatal]

NARRATIVE: CASE EVENT DATE: 20190506
